FAERS Safety Report 5862098-3 (Version None)
Quarter: 2008Q3

REPORT INFORMATION
  Report Type: 
  Country: None (occurrence: None)
  Receive Date: 20080827
  Receipt Date: 20080827
  Transmission Date: 20090109
  Serious: Yes (Hospitalization)
  Sender: FDA-Public Use
  Company Number: None

PATIENT
  Age: 48 Year
  Sex: Female

DRUGS (6)
  1. CELEBREX [Suspect]
     Dates: start: 20070420, end: 20070420
  2. INSULIN PUMP [Concomitant]
  3. MULTI-VITAMIN [Concomitant]
  4. TYLENOL W/ CODEINE NO. 3 [Concomitant]
  5. VICODIN [Concomitant]
  6. ANESTHESIA WITH MARCAINE [Concomitant]

REACTIONS (2)
  - HEPATITIS CHOLESTATIC [None]
  - LIVER DISORDER [None]
